FAERS Safety Report 8305944-6 (Version None)
Quarter: 2012Q1

REPORT INFORMATION
  Report Type: 
  Country: None (occurrence: None)
  Receive Date: 20120326
  Receipt Date: 20120120
  Transmission Date: 20120608
  Serious: Yes (Other)
  Sender: FDA-Public Use
  Company Number: PHEH2012US001865

PATIENT
  Age: 59 Year
  Sex: Female

DRUGS (7)
  1. PROMETRIUM [Concomitant]
  2. XANAX [Concomitant]
  3. VIVELLE-DOT [Suspect]
     Dosage: SEE IMAGE
     Route: 062
  4. HYZAAR (HYDROCHLOROTHAZIDE, LOSARTAN POTASSIUM) [Concomitant]
  5. NORVASC [Concomitant]
  6. NEXIUM [Suspect]
     Indication: GASTROOESOPHAGEAL REFLUX DISEASE
     Dosage: 40 MG, BID
  7. CYMBALTA [Concomitant]

REACTIONS (6)
  - HOT FLUSH [None]
  - ULCER [None]
  - DEPRESSION [None]
  - PERSONALITY CHANGE [None]
  - IRRITABILITY [None]
  - GASTROOESOPHAGEAL REFLUX DISEASE [None]
